FAERS Safety Report 8286236 (Version 2)
Quarter: 2012Q4

REPORT INFORMATION
  Report Type: Report from Study
  Country: DE (occurrence: DE)
  Receive Date: 20111213
  Receipt Date: 20120830
  Transmission Date: 20130627
  Serious: Yes (Hospitalization)
  Sender: FDA-Public Use
  Company Number: DE-ROCHE-1020493

PATIENT
  Sex: Female
  Weight: 86 kg

DRUGS (13)
  1. ROACTEMRA [Suspect]
     Indication: RHEUMATOID ARTHRITIS
     Route: 042
     Dates: start: 20110114, end: 20111020
  2. ROACTEMRA [Suspect]
     Dates: start: 20110726
  3. ROACTEMRA [Suspect]
     Dates: start: 20110826
  4. ROACTEMRA [Suspect]
     Dates: start: 20110919
  5. ROACTEMRA [Suspect]
     Dates: start: 20111020
  6. METEX [Suspect]
     Indication: RHEUMATOID ARTHRITIS
     Route: 048
     Dates: start: 20060214, end: 201111
  7. PREDNISOLON [Concomitant]
     Indication: RHEUMATOID ARTHRITIS
     Route: 048
  8. PREDNISOLON [Concomitant]
     Route: 048
  9. ARCOXIA [Concomitant]
     Indication: RHEUMATOID ARTHRITIS
     Route: 048
     Dates: start: 200607
  10. CITALOPRAM [Concomitant]
     Indication: DEPRESSION
  11. TRAMADOL [Concomitant]
     Indication: PAIN
     Route: 048
  12. CARMEN [Concomitant]
     Indication: HYPERTENSION
     Route: 048
  13. LEVODOPA [Concomitant]

REACTIONS (3)
  - Pyoderma gangrenosum [Recovered/Resolved with Sequelae]
  - Post procedural infection [Unknown]
  - Cerebral disorder [None]
